FAERS Safety Report 6392976-0 (Version None)
Quarter: 2009Q4

REPORT INFORMATION
  Report Type: 
  Country: None (occurrence: None)
  Receive Date: 20091008
  Receipt Date: 20080328
  Transmission Date: 20100525
  Serious: Yes (Hospitalization, Other)
  Sender: FDA-Public Use
  Company Number: US-ASTRAZENECA-2007UW15941

PATIENT
  Age: 26 Year
  Sex: Male
  Weight: 102.1 kg

DRUGS (32)
  1. SEROQUEL [Suspect]
     Indication: BIPOLAR DISORDER
     Route: 048
     Dates: start: 19990901, end: 20070701
  2. SEROQUEL [Suspect]
     Indication: DEPRESSION
     Route: 048
     Dates: start: 19990901, end: 20070701
  3. SEROQUEL [Suspect]
     Indication: SLEEP DISORDER
     Route: 048
     Dates: start: 19990901, end: 20070701
  4. SEROQUEL [Suspect]
     Route: 048
     Dates: start: 20000331, end: 20000505
  5. SEROQUEL [Suspect]
     Route: 048
     Dates: start: 20000331, end: 20000505
  6. SEROQUEL [Suspect]
     Route: 048
     Dates: start: 20000331, end: 20000505
  7. SEROQUEL [Suspect]
     Dosage: DOSE: 100 MG TO 750 MG DAILY
     Route: 048
     Dates: start: 20001115
  8. SEROQUEL [Suspect]
     Dosage: DOSE: 100 MG TO 750 MG DAILY
     Route: 048
     Dates: start: 20001115
  9. SEROQUEL [Suspect]
     Dosage: DOSE: 100 MG TO 750 MG DAILY
     Route: 048
     Dates: start: 20001115
  10. GEODON [Concomitant]
     Dates: start: 19990901, end: 20070701
  11. GEODON [Concomitant]
     Dosage: 60 MG TO 90 MG
     Dates: start: 20031017, end: 20041001
  12. HALDOL [Concomitant]
     Indication: AGGRESSION
  13. HALDOL [Concomitant]
     Dates: start: 20001115
  14. RISPERDAL [Concomitant]
     Dates: start: 19990101, end: 20010101
  15. RISPERDAL [Concomitant]
     Dates: start: 20000505, end: 20031017
  16. THORAZINE [Concomitant]
     Dates: start: 20011201
  17. ZYPREXA [Concomitant]
     Dates: start: 19990101, end: 20010101
  18. PROZAC [Concomitant]
     Indication: DEPRESSION
     Dates: start: 20071101
  19. PROZAC [Concomitant]
     Dates: start: 20031017
  20. LITHIUM [Concomitant]
     Dates: start: 20051206
  21. PAXIL [Concomitant]
     Indication: AGGRESSION
     Dates: start: 20000331
  22. VIAGRA [Concomitant]
     Indication: ERECTILE DYSFUNCTION
     Dosage: DOSE: 50 MG TO 100 MG
     Dates: start: 20001115
  23. COGENTIN [Concomitant]
     Dosage: DOSE: 2 MG TO 4 MG
     Dates: start: 20001115
  24. INDERAL [Concomitant]
     Dates: start: 20001115
  25. TEGRETOL [Concomitant]
     Dosage: 100 MG QAM 200 QHS
     Dates: start: 20001115
  26. VISTARIL [Concomitant]
     Dosage: 25 MG PRN
     Dates: start: 20001115
  27. REMERON [Concomitant]
     Dates: start: 20031017
  28. RESTORIL [Concomitant]
     Indication: DEPRESSION
     Dates: start: 20040816
  29. HUMULIN R [Concomitant]
     Dosage: 70/30 - 20 TO 45 UNITS
     Dates: start: 20040816
  30. GLUCOPHAGE XR [Concomitant]
     Dosage: TAKE ONE IN THE MORNING
     Dates: start: 20040816
  31. NEURONTIN [Concomitant]
     Dates: start: 20060905
  32. CELEXA [Concomitant]
     Dates: start: 20000505

REACTIONS (7)
  - DIABETES MELLITUS INADEQUATE CONTROL [None]
  - HOSPITALISATION [None]
  - NEUROPATHY PERIPHERAL [None]
  - PSYCHOTIC DISORDER [None]
  - SEDATION [None]
  - TYPE 1 DIABETES MELLITUS [None]
  - TYPE 2 DIABETES MELLITUS [None]
